FAERS Safety Report 5006929-8 (Version None)
Quarter: 2006Q2

REPORT INFORMATION
  Report Type: 
  Country: None (occurrence: None)
  Receive Date: 20060517
  Receipt Date: 20060503
  Transmission Date: 20061013
  Serious: Yes (Hospitalization)
  Sender: FDA-Public Use
  Company Number: 110312ISR

PATIENT
  Age: 65 Year
  Sex: Female

DRUGS (2)
  1. GLATIRAMER ACETATE [Suspect]
     Indication: MULTIPLE SCLEROSIS
     Dosage: 20 MILLIGRAM SUBCUTANEOUS
     Route: 058
     Dates: start: 20020501, end: 20060401
  2. GABAPENTIN [Concomitant]

REACTIONS (4)
  - COAGULOPATHY [None]
  - DRUG INTERACTION [None]
  - LYMPHOMA [None]
  - SPLENOMEGALY [None]
